FAERS Safety Report 9482202 (Version 5)
Quarter: 2014Q1

REPORT INFORMATION
  Report Type: Spontaneous
  Country: JP (occurrence: JP)
  Receive Date: 20130828
  Receipt Date: 20140321
  Transmission Date: 20141002
  Serious: Yes (Death, Hospitalization, Other)
  Sender: FDA-Public Use
  Company Number: JP-JNJFOC-20130814281

PATIENT
  Age: 65 Year
  Sex: Female
  Weight: 54 kg

DRUGS (20)
  1. REMICADE [Suspect]
     Indication: RHEUMATOID ARTHRITIS
     Dosage: 29TH DOSE OF INFLIXIMAB
     Route: 042
     Dates: start: 20130529
  2. REMICADE [Suspect]
     Indication: RHEUMATOID ARTHRITIS
     Dosage: TWENTY SEVENTH DOSE OF INFLIXIMAB
     Route: 042
     Dates: start: 20130206
  3. REMICADE [Suspect]
     Indication: RHEUMATOID ARTHRITIS
     Route: 042
     Dates: start: 20090527
  4. REMICADE [Suspect]
     Indication: RHEUMATOID ARTHRITIS
     Dosage: TWENTY FORTH DOSE OF INFLIXIMAB
     Route: 042
     Dates: start: 20120711
  5. PREDONINE [Suspect]
     Indication: RHEUMATOID ARTHRITIS
     Dosage: 60MG-80MG
     Route: 048
     Dates: start: 20130522, end: 20130528
  6. PREDONINE [Suspect]
     Indication: RHEUMATOID ARTHRITIS
     Route: 048
     Dates: end: 20130706
  7. PREDONINE [Suspect]
     Indication: RHEUMATOID ARTHRITIS
     Route: 048
     Dates: start: 20130626, end: 20130706
  8. PREDONINE [Suspect]
     Indication: RHEUMATOID ARTHRITIS
     Route: 048
     Dates: start: 20130410, end: 20130416
  9. PREDONINE [Suspect]
     Indication: RHEUMATOID ARTHRITIS
     Route: 048
     Dates: start: 20130417, end: 20130507
  10. PREDONINE [Suspect]
     Indication: RHEUMATOID ARTHRITIS
     Dosage: 60MG-80MG
     Route: 048
     Dates: start: 20130612, end: 20130625
  11. PREDONINE [Suspect]
     Indication: RHEUMATOID ARTHRITIS
     Dosage: 60MG-80MG
     Route: 048
     Dates: start: 20130529, end: 20130611
  12. PREDONINE [Suspect]
     Indication: RHEUMATOID ARTHRITIS
     Dosage: 60MG-80MG
     Route: 048
     Dates: start: 20130515, end: 20130521
  13. PREDONINE [Suspect]
     Indication: RHEUMATOID ARTHRITIS
     Dosage: 60MG-80MG
     Route: 048
     Dates: start: 20130508, end: 20130514
  14. EDIROL [Concomitant]
     Indication: PROPHYLAXIS
     Route: 048
     Dates: end: 20130706
  15. NEXIUM [Concomitant]
     Indication: PROPHYLAXIS
     Route: 048
     Dates: end: 20130706
  16. STEROIDS NOS [Concomitant]
     Route: 065
     Dates: start: 2013
  17. METHOTREXATE [Concomitant]
     Indication: RHEUMATOID ARTHRITIS
     Route: 048
     Dates: start: 20130706
  18. LIPIDIL [Concomitant]
     Indication: HYPERLIPIDAEMIA
     Route: 048
     Dates: end: 20130706
  19. FOLIAMIN [Concomitant]
     Indication: PROPHYLAXIS
     Route: 048
     Dates: end: 20130706
  20. SENNOSIDE [Concomitant]
     Indication: CONSTIPATION
     Route: 048
     Dates: end: 20130706

REACTIONS (7)
  - Pneumonia fungal [Fatal]
  - Autoimmune hepatitis [Unknown]
  - Interstitial lung disease [Not Recovered/Not Resolved]
  - Lung adenocarcinoma [Unknown]
  - Pleural effusion [Not Recovered/Not Resolved]
  - Gallbladder injury [Unknown]
  - Hepatic steatosis [Unknown]
